FAERS Safety Report 6473173-7 (Version None)
Quarter: 2009Q4

REPORT INFORMATION
  Report Type: 
  Country: None (occurrence: None)
  Receive Date: 20091204
  Receipt Date: 20090129
  Transmission Date: 20100525
  Serious: Yes (Death)
  Sender: FDA-Public Use
  Company Number: CH-ELI_LILLY_AND_COMPANY-CH200809006201

PATIENT
  Age: 27 Year
  Sex: Male
  Weight: 100 kg

DRUGS (8)
  1. ZYPREXA [Suspect]
     Indication: SCHIZOPHRENIA
     Dosage: 20 MG, DAILY (1/D)
     Route: 048
     Dates: start: 20030301, end: 20040401
  2. ZYPREXA [Suspect]
     Dosage: 30 MG, DAILY (1/D)
     Route: 048
     Dates: start: 20040401, end: 20050101
  3. ZYPREXA [Suspect]
     Dosage: 40 MG, DAILY (1/D)
     Route: 048
     Dates: start: 20050101
  4. LORASIFAR [Concomitant]
     Indication: ANXIETY
     Dosage: 3 MG, DAILY (1/D)
     Route: 048
     Dates: start: 20030101
  5. CITALOPRAM HYDROBROMIDE [Concomitant]
     Indication: DEPRESSION
     Dosage: 20 MG, DAILY (1/D)
     Route: 048
     Dates: start: 20070601, end: 20080201
  6. CITALOPRAM HYDROBROMIDE [Concomitant]
     Dosage: 40 MG, DAILY (1/D)
     Route: 048
     Dates: start: 20080201
  7. ZOLPIDEM [Concomitant]
     Indication: INSOMNIA
     Dosage: 10 MG, AS NEEDED
     Route: 048
     Dates: start: 20080101
  8. NICOTINE [Concomitant]
     Dosage: 15 MG, UNK
     Route: 062

REACTIONS (8)
  - BODY TEMPERATURE INCREASED [None]
  - DRUG INTERACTION [None]
  - DYSPEPSIA [None]
  - ELECTROLYTE IMBALANCE [None]
  - HEAT STROKE [None]
  - MALAISE [None]
  - OVERDOSE [None]
  - PANCREATIC HAEMORRHAGE [None]
